FAERS Safety Report 8122603-3 (Version None)
Quarter: 2012Q1

REPORT INFORMATION
  Report Type: 
  Country: None (occurrence: None)
  Receive Date: 20120208
  Receipt Date: 20120206
  Transmission Date: 20120608
  Serious: Yes (Disabling)
  Sender: FDA-Public Use
  Company Number: US-MERCK-1202USA01126

PATIENT
  Age: 64 Year
  Sex: Female

DRUGS (9)
  1. FOSAMAX PLUS D [Suspect]
     Route: 048
     Dates: start: 20100801
  2. FOSAMAX PLUS D [Suspect]
     Route: 048
     Dates: start: 20090601, end: 20100101
  3. ACTONEL [Suspect]
     Route: 065
     Dates: start: 20100101
  4. FOSAMAX [Suspect]
     Route: 048
     Dates: start: 19960101
  5. BONIVA [Suspect]
     Route: 065
     Dates: start: 20090101
  6. BONIVA [Suspect]
     Route: 065
     Dates: start: 20101001, end: 20110201
  7. ACTONEL [Suspect]
     Route: 065
     Dates: start: 20100101
  8. FOSAMAX PLUS D [Suspect]
     Route: 048
     Dates: start: 20080601, end: 20080101
  9. BONIVA [Suspect]
     Route: 065
     Dates: start: 20080101

REACTIONS (2)
  - LOW TURNOVER OSTEOPATHY [None]
  - FEMUR FRACTURE [None]
